FAERS Safety Report 5963777-X (Version None)
Quarter: 2008Q4

REPORT INFORMATION
  Report Type: 
  Country: None (occurrence: None)
  Receive Date: 20081121
  Receipt Date: 20081121
  Transmission Date: 20090506
  Serious: Yes (Life-Threatening, Hospitalization, Disabling)
  Sender: FDA-Public Use
  Company Number: None

PATIENT
  Age: 40 Year
  Sex: Male
  Weight: 74.8435 kg

DRUGS (1)
  1. TEGRETOL [Suspect]
     Indication: AFFECTIVE DISORDER
     Dosage: 200 AM PO; 400 PM PO
     Route: 048
     Dates: start: 20080801, end: 20081013

REACTIONS (2)
  - PERICARDITIS [None]
  - WHITE BLOOD CELL COUNT DECREASED [None]
